FAERS Safety Report 8240957-4 (Version None)
Quarter: 2012Q1

REPORT INFORMATION
  Report Type: 
  Country: None (occurrence: None)
  Receive Date: 20120328
  Receipt Date: 20120320
  Transmission Date: 20120608
  Serious: Yes (Death, Hospitalization)
  Sender: FDA-Public Use
  Company Number: US-JNJFOC-20090402199

PATIENT
  Sex: Female
  Weight: 48 kg

DRUGS (15)
  1. ACETAMINOPHEN [Suspect]
     Indication: HEADACHE
     Dosage: 1000-2000 MG PER WEEK ON AVERAGE
  2. MEGACE [Concomitant]
     Dates: start: 20041216
  3. MONTELUKAST [Suspect]
     Dates: start: 20030703
  4. EXTRA STRENGTH TYLENOL PM [Interacting]
     Indication: INSOMNIA
     Route: 048
     Dates: start: 20040903
  5. PREVACID [Concomitant]
     Dates: start: 20030703
  6. MOTRIN [Suspect]
     Dates: start: 20030705
  7. EUCERIN [Concomitant]
     Dates: start: 20041007
  8. LEVOTHYROXINE SODIUM [Interacting]
     Indication: HYPOTHYROIDISM
     Dosage: DAY 12 OF CYCLE 8
     Dates: start: 20050531
  9. ALBUTEROL [Concomitant]
     Dates: start: 20030703
  10. LEVOTHYROXINE SODIUM [Interacting]
     Dosage: ON DAY 28 OF CYCLE 8
  11. ZYRTEC [Suspect]
     Dates: start: 20030703
  12. ZANTAC [Concomitant]
     Dates: start: 20040715
  13. ACETAMINOPHEN [Suspect]
  14. SUNITINIB MALATE [Interacting]
     Indication: GASTROINTESTINAL STROMAL TUMOUR
     Dosage: REPEATING 6 WK CYCLES OF 4 WK ON 50 MG/DAY FOLLOWED BY 2 WKS OFF TREATMENT
     Route: 048
     Dates: start: 20040716, end: 20050702
  15. LEVOTHYROXINE SODIUM [Interacting]
     Dosage: AFTER 1 WEEK OF STARTING THE 50 UG

REACTIONS (3)
  - DRUG INTERACTION [None]
  - HEPATIC FAILURE [None]
  - RENAL FAILURE [None]
